FAERS Safety Report 4717444-0 (Version None)
Quarter: 2005Q3

REPORT INFORMATION
  Report Type: 
  Country: None (occurrence: None)
  Receive Date: 20050711
  Receipt Date: 20050414
  Transmission Date: 20060218
  Serious: No
  Sender: FDA-Public Use
  Company Number: A03200501134

PATIENT
  Sex: Female

DRUGS (2)
  1. UROXATRAL [Suspect]
     Indication: DYSURIA
     Dosage: ORAL
     Route: 048
     Dates: start: 20050401
  2. UROXATRAL [Suspect]
     Indication: HYPOTONIA
     Dosage: ORAL
     Route: 048
     Dates: start: 20050401

REACTIONS (2)
  - DRUG INEFFECTIVE FOR UNAPPROVED INDICATION [None]
  - MICTURITION DISORDER [None]
